FAERS Safety Report 7197011-2 (Version None)
Quarter: 2010Q4

REPORT INFORMATION
  Report Type: 
  Country: None (occurrence: None)
  Receive Date: 20101224
  Receipt Date: 20101220
  Transmission Date: 20110411
  Serious: Yes (Hospitalization)
  Sender: FDA-Public Use
  Company Number: US-ELI_LILLY_AND_COMPANY-US201012005138

PATIENT
  Sex: Male

DRUGS (10)
  1. HUMALOG [Suspect]
     Indication: TYPE 2 DIABETES MELLITUS
     Dosage: 15 U, UNK
     Dates: start: 20080101
  2. HUMALOG [Suspect]
     Dosage: 15 U, UNK
  3. LANTUS [Concomitant]
     Dosage: UNK, EACH EVENING
  4. CLONIDINE HCL [Concomitant]
     Dosage: UNK, 3/D
  5. LIPITOR [Concomitant]
     Dosage: 20 MG, DAILY (1/D)
  6. TRIAMTERENE AND HYDROCHLOROTHIAZIDE [Concomitant]
     Dosage: UNK, DAILY (1/D)
  7. QUINAPRIL [Concomitant]
     Dosage: 40 MG, DAILY (1/D)
  8. METFORMIN [Concomitant]
     Dosage: 1000 MG, 2/D
  9. MULTI-VITAMINS [Concomitant]
  10. ASPIRIN [Concomitant]
     Dosage: UNK, DAILY (1/D)

REACTIONS (2)
  - GALLBLADDER DISORDER [None]
  - GLYCOSYLATED HAEMOGLOBIN INCREASED [None]
